FAERS Safety Report 22532853 (Version 1)
Quarter: 2023Q2

REPORT INFORMATION
  Report Type: Spontaneous
  Country: GR (occurrence: GR)
  Receive Date: 20230607
  Receipt Date: 20230607
  Transmission Date: 20230722
  Serious: Yes (Hospitalization, Other)
  Sender: FDA-Public Use
  Company Number: GR-NOVPHSZ-PHHY2019GR179182

PATIENT
  Age: 27 Year
  Sex: Male

DRUGS (13)
  1. MOXIFLOXACIN [Interacting]
     Active Substance: MOXIFLOXACIN
     Indication: Tuberculosis
     Dosage: 600 MG, UNK
     Route: 065
  2. BEDAQUILINE [Interacting]
     Active Substance: BEDAQUILINE
     Indication: Tuberculosis
     Dosage: 200 MG, QW
     Route: 065
  3. BEDAQUILINE [Interacting]
     Active Substance: BEDAQUILINE
     Dosage: 400 MG, QD
     Route: 065
  4. BEDAQUILINE [Interacting]
     Active Substance: BEDAQUILINE
     Dosage: 600 MG, QW
     Route: 065
  5. ETHIONAMIDE [Concomitant]
     Active Substance: ETHIONAMIDE
     Indication: Tuberculosis
     Dosage: UNK
     Route: 065
  6. LINEZOLID [Concomitant]
     Active Substance: LINEZOLID
     Indication: Tuberculosis
     Dosage: UNK
     Route: 065
  7. CAPREOMYCIN [Concomitant]
     Active Substance: CAPREOMYCIN
     Indication: Tuberculosis
     Dosage: UNK
     Route: 065
  8. CAPREOMYCIN [Concomitant]
     Active Substance: CAPREOMYCIN
     Route: 065
  9. CYCLOSERINE [Concomitant]
     Active Substance: CYCLOSERINE
     Indication: Tuberculosis
     Dosage: UNK
     Route: 065
  10. CYCLOSERINE [Concomitant]
     Active Substance: CYCLOSERINE
     Route: 065
  11. PYRAZINAMIDE [Concomitant]
     Active Substance: PYRAZINAMIDE
     Indication: Tuberculosis
     Dosage: UNK
     Route: 065
  12. PYRAZINAMIDE [Concomitant]
     Active Substance: PYRAZINAMIDE
     Route: 065
  13. IMIPENEM AND CILASTATIN [Concomitant]
     Active Substance: CILASTATIN SODIUM\IMIPENEM
     Indication: Tuberculosis
     Dosage: UNK
     Route: 065

REACTIONS (2)
  - Electrocardiogram QT prolonged [Unknown]
  - Drug interaction [Unknown]
